FAERS Safety Report 6232754-6 (Version None)
Quarter: 2009Q2

REPORT INFORMATION
  Report Type: 
  Country: None (occurrence: None)
  Receive Date: 20090617
  Receipt Date: 20090611
  Transmission Date: 20091009
  Serious: Yes (Death, Other)
  Sender: FDA-Public Use
  Company Number: NL-B.I. PHARMACEUTICALS,INC./RIDGEFIELD-2009-NL-00384NL

PATIENT
  Sex: Male

DRUGS (1)
  1. SIFROL [Suspect]

REACTIONS (1)
  - CARDIAC FAILURE [None]
